FAERS Safety Report 9330302 (Version 1)
Quarter: 2013Q2

REPORT INFORMATION
  Report Type: Spontaneous
  Country: AU (occurrence: AU)
  Receive Date: 20130605
  Receipt Date: 20130605
  Transmission Date: 20140414
  Serious: Yes (Hospitalization, Other)
  Sender: FDA-Public Use
  Company Number: AU-B.I. PHARMACEUTICALS,INC./RIDGEFIELD-2013-AU-00667AU

PATIENT
  Age: 6 Decade
  Sex: Male

DRUGS (4)
  1. MICARDIS [Suspect]
     Indication: HYPERTENSION
     Dosage: 80 MG
  2. BETA BLOCKER [Concomitant]
  3. DIGOXIN [Concomitant]
     Indication: CARDIAC FAILURE
  4. WARFARIN [Concomitant]

REACTIONS (2)
  - Cardiac failure [Recovered/Resolved]
  - Dyspnoea [Recovered/Resolved]
